FAERS Safety Report 10037432 (Version 1)
Quarter: 2014Q1

REPORT INFORMATION
  Report Type: Report from Study
  Country: FR (occurrence: FR)
  Receive Date: 20140326
  Receipt Date: 20140326
  Transmission Date: 20141002
  Serious: Yes (Hospitalization)
  Sender: FDA-Public Use
  Company Number: FR-ROCHE-1367523

PATIENT
  Sex: Female

DRUGS (11)
  1. RITUXIMAB [Suspect]
     Indication: RHEUMATOID ARTHRITIS
     Dosage: 1 G D1
     Route: 065
     Dates: start: 20070613
  2. RITUXIMAB [Suspect]
     Dosage: 1G D15
     Route: 065
     Dates: start: 20070627
  3. RITUXIMAB [Suspect]
     Dosage: 1G D1
     Route: 065
     Dates: start: 20080326
  4. RITUXIMAB [Suspect]
     Dosage: 1G D15
     Route: 065
     Dates: start: 20080407
  5. RITUXIMAB [Suspect]
     Dosage: 1G D1
     Route: 065
     Dates: start: 20081104, end: 20081104
  6. TOCILIZUMAB [Suspect]
     Indication: RHEUMATOID ARTHRITIS
     Route: 065
     Dates: start: 20110726
  7. ORENCIA [Suspect]
     Indication: RHEUMATOID ARTHRITIS
     Route: 065
     Dates: start: 20090223
  8. CORTANCYL [Concomitant]
     Route: 065
  9. METHOTREXATE [Concomitant]
     Dosage: 10 MG WEEKLY
     Route: 065
  10. METHYLPREDNISOLONE [Concomitant]
  11. PARACETAMOL [Concomitant]

REACTIONS (5)
  - Asthma [Not Recovered/Not Resolved]
  - Arthritis [Recovered/Resolved]
  - Infusion related reaction [Recovered/Resolved]
  - Diarrhoea [Recovered/Resolved]
  - Abscess limb [Recovering/Resolving]
